FAERS Safety Report 7151921-0 (Version None)
Quarter: 2010Q4

REPORT INFORMATION
  Report Type: 
  Country: None (occurrence: None)
  Receive Date: 20101210
  Receipt Date: 20101206
  Transmission Date: 20110411
  Serious: Yes (Other)
  Sender: FDA-Public Use
  Company Number: US-MERCK-1011USA01398

PATIENT
  Age: 50 Year
  Sex: Female

DRUGS (5)
  1. JANUMET [Suspect]
     Indication: DIABETES MELLITUS
     Route: 048
     Dates: start: 20090101, end: 20101001
  2. LEVEMIR [Concomitant]
     Route: 065
  3. CARVEDILOL [Concomitant]
     Route: 065
  4. PRAVASTATIN SODIUM [Concomitant]
     Route: 065
  5. NIACIN [Concomitant]
     Route: 065

REACTIONS (9)
  - ABDOMINAL PAIN UPPER [None]
  - ASTHENIA [None]
  - CEREBROVASCULAR ACCIDENT [None]
  - DIARRHOEA [None]
  - FEELING COLD [None]
  - MYALGIA [None]
  - RESPIRATION ABNORMAL [None]
  - SKIN TIGHTNESS [None]
  - SOMNOLENCE [None]
